FAERS Safety Report 5152489-0 (Version None)
Quarter: 2006Q4

REPORT INFORMATION
  Report Type: 
  Country: None (occurrence: None)
  Receive Date: 20061116
  Receipt Date: 20061114
  Transmission Date: 20070319
  Serious: Yes (Death, Hospitalization)
  Sender: FDA-Public Use
  Company Number: CH-BRISTOL-MYERS SQUIBB COMPANY-13578604

PATIENT
  Age: 47 Year
  Sex: Male

DRUGS (6)
  1. ABILIFY [Suspect]
  2. OPIATE SUBSTANCES [Concomitant]
  3. SURMONTIL [Concomitant]
  4. ZOLOFT [Concomitant]
  5. TRANXILIUM [Concomitant]
  6. TETRAHYDROCANNABINOL [Concomitant]

REACTIONS (1)
  - ENCEPHALOPATHY [None]
